FAERS Safety Report 6867050-7 (Version None)
Quarter: 2010Q3

REPORT INFORMATION
  Report Type: 
  Country: None (occurrence: None)
  Receive Date: 20100722
  Receipt Date: 20100713
  Transmission Date: 20110219
  Serious: Yes (Other)
  Sender: FDA-Public Use
  Company Number: JP-ALLERGAN-1009307US

PATIENT
  Age: 71 Year
  Sex: Male

DRUGS (4)
  1. CYCLOSPORINE UNK [Suspect]
     Indication: PROPHYLAXIS AGAINST TRANSPLANT REJECTION
     Dosage: FIVE TIMES PER DAY
     Dates: start: 20070101
  2. HYDROCORTISONE [Suspect]
     Indication: PROPHYLAXIS AGAINST TRANSPLANT REJECTION
     Dosage: 600 MG, UNK
  3. PREDNISOLONE [Suspect]
     Indication: PROPHYLAXIS AGAINST TRANSPLANT REJECTION
     Dosage: 30 MG, QD
  4. BETAMETHASONE [Suspect]
     Indication: PROPHYLAXIS AGAINST TRANSPLANT REJECTION
     Dosage: FIVE TIMES PER DAY

REACTIONS (1)
  - CORNEAL ENDOTHELIITIS [None]
